FAERS Safety Report 4509575-5 (Version None)
Quarter: 2004Q4

REPORT INFORMATION
  Report Type: 
  Country: None (occurrence: None)
  Receive Date: 20041119
  Receipt Date: 20041029
  Transmission Date: 20050328
  Serious: Yes (Hospitalization, Other)
  Sender: FDA-Public Use
  Company Number: US_031098485

PATIENT
  Age: 55 Year
  Sex: Male
  Weight: 200 kg

DRUGS (17)
  1. HUMATROPE [Suspect]
     Indication: GROWTH HORMONE DEFICIENCY
     Dosage: 0.43 U AT BEDTIME
     Dates: start: 20020201
  2. ANDRODERM [Concomitant]
  3. SYNTHROID [Concomitant]
  4. LIPITOR [Concomitant]
  5. ZOLOFT [Concomitant]
  6. CARDIZEM [Concomitant]
  7. PREDNISONE [Concomitant]
  8. HYDROCORTISONE [Concomitant]
  9. DIOVAN [Concomitant]
  10. LASIX [Concomitant]
  11. PRAVACHOL [Concomitant]
  12. MONOPRIL [Concomitant]
  13. BUMEX [Concomitant]
  14. PEPCID [Concomitant]
  15. NYSTATIN [Concomitant]
  16. AMPHOJEL (ALUMINIUM HYDROXIDE GEL) [Concomitant]
  17. XANAX (ALPRAZOLAM DUM) [Concomitant]

REACTIONS (20)
  - ANAEMIA [None]
  - ASTHENIA [None]
  - BLOOD URINE PRESENT [None]
  - CELLULITIS [None]
  - CONJUNCTIVAL DISCOLOURATION [None]
  - DEEP VEIN THROMBOSIS [None]
  - DEPRESSION [None]
  - DIALYSIS [None]
  - GAIT DISTURBANCE [None]
  - HAEMORRHAGE [None]
  - LUNG INFECTION PSEUDOMONAL [None]
  - OEDEMA PERIPHERAL [None]
  - PERIPHERAL ARTERY ANEURYSM [None]
  - PNEUMONIA STAPHYLOCOCCAL [None]
  - PROTEIN URINE PRESENT [None]
  - RENAL FAILURE ACUTE [None]
  - SHOCK [None]
  - STASIS DERMATITIS [None]
  - TROPONIN INCREASED [None]
  - ULCER [None]
